FAERS Safety Report 4302450-0 (Version None)
Quarter: 2004Q1

REPORT INFORMATION
  Report Type: 
  Country: None (occurrence: None)
  Receive Date: 20040218
  Receipt Date: 20031217
  Transmission Date: 20041129
  Serious: Yes (Other)
  Sender: FDA-Public Use
  Company Number: 200315145US

PATIENT
  Age: 78 Year
  Sex: Male
  Weight: 74.5 kg

DRUGS (4)
  1. LANTUS [Suspect]
     Indication: DIABETES MELLITUS INSULIN-DEPENDENT
     Dosage: HS
  2. METFORMIN HYDROCHLORIDE, GLIBENCLAMIDE (GLUCOVANCE) [Concomitant]
  3. AVANDIA [Concomitant]
  4. STARLIX [Concomitant]

REACTIONS (1)
  - HYPOGLYCAEMIC SEIZURE [None]
